FAERS Safety Report 9249992 (Version 2)
Quarter: 2014Q3

REPORT INFORMATION
  Report Type: Report from Study
  Country: JP (occurrence: JP)
  Receive Date: 20130424
  Receipt Date: 20140708
  Transmission Date: 20150326
  Serious: Yes (Life-Threatening)
  Sender: FDA-Public Use
  Company Number: JP-ROCHE-1216995

PATIENT
  Age: 63 Year
  Sex: Male
  Weight: 65 kg

DRUGS (9)
  1. DIPRIVAN [Concomitant]
     Active Substance: PROPOFOL
     Route: 065
     Dates: start: 20120412, end: 20120420
  2. CITICOLINE [Concomitant]
     Active Substance: CITICOLINE
     Route: 065
     Dates: start: 20120410, end: 20120422
  3. ALTEPLASE [Suspect]
     Active Substance: ALTEPLASE
     Indication: THROMBOTIC CEREBRAL INFARCTION
     Route: 042
     Dates: start: 20120409, end: 20120409
  4. CILOSTAZOL. [Concomitant]
     Active Substance: CILOSTAZOL
     Route: 048
     Dates: start: 20120423, end: 20120505
  5. CLOPIDOGREL BISULFATE. [Concomitant]
     Active Substance: CLOPIDOGREL BISULFATE
     Route: 048
     Dates: start: 20120423, end: 20120505
  6. INSULIN [Concomitant]
     Active Substance: INSULIN NOS
     Route: 065
  7. EDARAVONE [Suspect]
     Active Substance: EDARAVONE
     Indication: THROMBOTIC CEREBRAL INFARCTION
     Route: 041
     Dates: start: 20120409, end: 20120422
  8. BIFONAZOLE [Concomitant]
     Active Substance: BIFONAZOLE
     Route: 065
     Dates: start: 20120409, end: 20120418
  9. OZAGREL SODIUM [Concomitant]
     Route: 065
     Dates: start: 20120410, end: 20120423

REACTIONS (3)
  - Pneumonia [Recovered/Resolved]
  - Anaemia [Recovering/Resolving]
  - Liver disorder [Recovering/Resolving]

NARRATIVE: CASE EVENT DATE: 20120412
